FAERS Safety Report 10178840 (Version 2)
Quarter: 2015Q1

REPORT INFORMATION
  Report Type: Spontaneous
  Country: US (occurrence: US)
  Receive Date: 20140519
  Receipt Date: 20150320
  Transmission Date: 20150720
  Serious: No
  Sender: FDA-Public Use
  Company Number: US-BIOGENIDEC-2014BI034084

PATIENT
  Age: 25 Year
  Sex: Female

DRUGS (1)
  1. TECFIDERA [Suspect]
     Active Substance: DIMETHYL FUMARATE
     Indication: MULTIPLE SCLEROSIS
     Route: 048
     Dates: start: 20130927

REACTIONS (12)
  - Nephrolithiasis [Recovered/Resolved]
  - Pain in extremity [Unknown]
  - Visual impairment [Unknown]
  - Fibromyalgia [Not Recovered/Not Resolved]
  - Drug withdrawal syndrome [Unknown]
  - Facial pain [Unknown]
  - Erythema [Unknown]
  - Ear discomfort [Unknown]
  - Chills [Unknown]
  - Arthralgia [Unknown]
  - Decreased appetite [Unknown]
  - Weight decreased [Unknown]

NARRATIVE: CASE EVENT DATE: 20131231
